FAERS Safety Report 13627612 (Version 1)
Quarter: 2017Q2

REPORT INFORMATION
  Report Type: Spontaneous
  Country: US (occurrence: US)
  Receive Date: 20170531
  Receipt Date: 20170531
  Transmission Date: 20170830
  Serious: Yes (Other)
  Sender: FDA-Public Use
  Company Number: US-ASTELLAS-1534689

PATIENT
  Age: 76 Year
  Sex: Female

DRUGS (16)
  1. ACETAMINOPHEN/OXYCODONE [Concomitant]
     Active Substance: ACETAMINOPHEN\OXYCODONE HYDROCHLORIDE
  2. HYDRALAZINE HCL [Concomitant]
     Active Substance: HYDRALAZINE HYDROCHLORIDE
  3. GLIMEPIRIDE. [Concomitant]
     Active Substance: GLIMEPIRIDE
  4. CLOPIDOGREL BISULFATE. [Concomitant]
     Active Substance: CLOPIDOGREL BISULFATE
  5. PRAZOSIN HYDROCHLORIDE. [Concomitant]
     Active Substance: PRAZOSIN HYDROCHLORIDE
  6. CHOLESTYRAMINE LIGHT [Concomitant]
     Active Substance: CHOLESTYRAMINE
  7. METFORMIN HYDROCHLORIDE. [Concomitant]
     Active Substance: METFORMIN HYDROCHLORIDE
     Route: 065
  8. TARCEVA [Suspect]
     Active Substance: ERLOTINIB HYDROCHLORIDE
     Indication: LUNG NEOPLASM MALIGNANT
     Route: 048
     Dates: start: 20150126
  9. LEVEMIR [Concomitant]
     Active Substance: INSULIN DETEMIR
  10. SYMBICORT [Concomitant]
     Active Substance: BUDESONIDE\FORMOTEROL FUMARATE DIHYDRATE
  11. BACLOFEN. [Concomitant]
     Active Substance: BACLOFEN
  12. FUROSEMIDE. [Concomitant]
     Active Substance: FUROSEMIDE
  13. PANTOPRAZOLE SODIUM. [Concomitant]
     Active Substance: PANTOPRAZOLE SODIUM
  14. XANAX [Concomitant]
     Active Substance: ALPRAZOLAM
  15. NITROSTAT [Concomitant]
     Active Substance: NITROGLYCERIN
  16. CLONIDINE HCL [Concomitant]
     Active Substance: CLONIDINE HYDROCHLORIDE

REACTIONS (12)
  - Decreased appetite [Unknown]
  - Mass [Unknown]
  - Abdominal pain [Unknown]
  - Rash [Unknown]
  - Nausea [Unknown]
  - Scab [Not Recovered/Not Resolved]
  - Diarrhoea [Not Recovered/Not Resolved]
  - Musculoskeletal pain [Unknown]
  - Drug ineffective [Unknown]
  - Diarrhoea [Unknown]
  - Blister [Unknown]
  - Headache [Unknown]

NARRATIVE: CASE EVENT DATE: 20150126
